FAERS Safety Report 23798069 (Version 1)
Quarter: 2024Q2

REPORT INFORMATION
  Report Type: Spontaneous
  Country: DE (occurrence: DE)
  Receive Date: 20240430
  Receipt Date: 20240430
  Transmission Date: 20240716
  Serious: Yes (Other)
  Sender: FDA-Public Use
  Company Number: None

PATIENT
  Age: 22 Year
  Sex: Female
  Weight: 60 kg

DRUGS (2)
  1. DULCOLAX STIMULANT LAXATIVE [Suspect]
     Active Substance: BISACODYL
     Indication: Constipation
     Dosage: 2 DRAGEES IN THE EVENING
     Route: 048
     Dates: start: 20240416, end: 20240417
  2. HERBALS [Concomitant]
     Active Substance: HERBALS
     Indication: Gastrointestinal pain
     Dosage: 20 DROPS
     Route: 048
     Dates: start: 20240416, end: 20240416

REACTIONS (10)
  - Circulatory collapse [Recovering/Resolving]
  - Tremor [Recovering/Resolving]
  - Hyperhidrosis [Recovering/Resolving]
  - Retching [Unknown]
  - Tachycardia [Recovering/Resolving]
  - Dizziness [Recovering/Resolving]
  - Diarrhoea [Recovering/Resolving]
  - Nausea [Recovering/Resolving]
  - Abdominal pain [Recovering/Resolving]
  - Abdominal pain [Recovering/Resolving]

NARRATIVE: CASE EVENT DATE: 20240417
